FAERS Safety Report 9768315 (Version 5)
Quarter: 2014Q2

REPORT INFORMATION
  Report Type: Report from Study
  Country: JP (occurrence: JP)
  Receive Date: 20131217
  Receipt Date: 20140411
  Transmission Date: 20141212
  Serious: Yes (Other)
  Sender: FDA-Public Use
  Company Number: JP-PFIZER INC-2013354210

PATIENT
  Age: 62 Year
  Sex: Male
  Weight: 70 kg

DRUGS (11)
  1. TEMSIROLIMUS [Suspect]
     Indication: METASTATIC RENAL CELL CARCINOMA
     Dosage: 25 MG, WEEKLY
     Route: 041
     Dates: start: 20120126, end: 20120426
  2. TEMSIROLIMUS [Suspect]
     Dosage: 25 MG, WEEKLY
     Route: 041
     Dates: start: 20120510, end: 20120517
  3. CHLOR-TRIMETON [Concomitant]
     Indication: PROPHYLAXIS
     Dosage: 10 MG, WEEKLY
     Route: 042
     Dates: start: 20120126, end: 20120426
  4. CHLOR-TRIMETON [Concomitant]
     Dosage: 10 MG, WEEKLY
     Route: 042
     Dates: start: 20120510, end: 20120517
  5. DEXART [Concomitant]
     Indication: PROPHYLAXIS
     Dosage: 6.6 MG, WEEKLY
     Route: 042
     Dates: start: 20120126, end: 20120426
  6. DEXART [Concomitant]
     Dosage: 6.6 MG, WEEKLY
     Route: 042
     Dates: start: 20120510, end: 20120517
  7. DAIKENTYUTO [Concomitant]
     Indication: PROPHYLAXIS
     Dosage: 2 DF, 3X/DAY
     Route: 048
  8. MAG-LAX [Concomitant]
     Indication: PROPHYLAXIS
     Dosage: 250 MG, 3X/DAY
     Route: 048
  9. TAKEPRON [Concomitant]
     Indication: GASTRIC ULCER
     Dosage: 15 MG, 1X/DAY
     Route: 048
  10. ZOPICLONE [Concomitant]
     Indication: INSOMNIA
     Dosage: 7.5 MG, 1X/DAY
     Route: 048
  11. OXYCONTIN [Concomitant]
     Indication: RENAL CELL CARCINOMA
     Dosage: 15 MG, 2X/DAY
     Route: 048
     Dates: start: 20130203

REACTIONS (2)
  - Dermatitis acneiform [Recovered/Resolved]
  - Rash pustular [Recovered/Resolved]
